FAERS Safety Report 8414325-6 (Version None)
Quarter: 2012Q2

REPORT INFORMATION
  Report Type: 
  Country: None (occurrence: None)
  Receive Date: 20120605
  Receipt Date: 20120529
  Transmission Date: 20120825
  Serious: Yes (Hospitalization)
  Sender: FDA-Public Use
  Company Number: PL-ROCHE-732611

PATIENT
  Sex: Female
  Weight: 101 kg

DRUGS (9)
  1. ACYCLOVIR [Concomitant]
  2. MABTHERA [Suspect]
     Dosage: MAINTENANCE PHASE
     Route: 042
  3. CYCLOPHOSPHAMIDE [Suspect]
     Indication: CHRONIC LYMPHOCYTIC LEUKAEMIA
     Dosage: LAST DOSE PRIOR TO SAE: 10/MAY/2010
     Route: 042
     Dates: start: 20091218
  4. BIRODOGYL [Concomitant]
     Dates: start: 20081217
  5. KETOPROFEN [Concomitant]
     Dates: start: 20100507
  6. PRESTARIUM NEO [Concomitant]
     Dates: start: 20091217
  7. CLADRIBINE [Suspect]
     Indication: CHRONIC LYMPHOCYTIC LEUKAEMIA
     Dosage: LAST DOSE PRIOR TO SAE: 10 MAY 2010
     Route: 042
  8. SULFAMETHOXAZOLE AND TRIMETHOPRIM [Concomitant]
     Dates: start: 20091217
  9. MABTHERA [Suspect]
     Indication: CHRONIC LYMPHOCYTIC LEUKAEMIA
     Dosage: LAST DOSE PRIOR TO SAE: 02 AUG 2010
     Route: 042

REACTIONS (2)
  - SKIN ULCER [None]
  - SQUAMOUS CELL CARCINOMA OF SKIN [None]
